FAERS Safety Report 9301838 (Version 1)
Quarter: 2013Q2

REPORT INFORMATION
  Report Type: Spontaneous
  Country: US (occurrence: US)
  Receive Date: 20130521
  Receipt Date: 20130521
  Transmission Date: 20140414
  Serious: Yes (Death)
  Sender: FDA-Public Use
  Company Number: US-TEVA-359258USA

PATIENT
  Sex: Male

DRUGS (2)
  1. ACTIQ [Suspect]
     Indication: CANCER PAIN
     Route: 002
  2. OXYCODONE [Concomitant]

REACTIONS (1)
  - Death [Fatal]
